FAERS Safety Report 25091354 (Version 5)
Quarter: 2025Q4

REPORT INFORMATION
  Report Type: Spontaneous
  Country: US (occurrence: US)
  Receive Date: 20250318
  Receipt Date: 20251023
  Transmission Date: 20260117
  Serious: Yes (Hospitalization, Other)
  Sender: SANOFI AVENTIS
  Company Number: US-SA-2025SA077257

PATIENT
  Age: 77 Year
  Sex: Male

DRUGS (1)
  1. DUPIXENT [Suspect]
     Active Substance: DUPILUMAB
     Indication: Chronic obstructive pulmonary disease
     Dosage: 300 MG, QOW
     Route: 058
     Dates: start: 202502

REACTIONS (18)
  - Anaemia [Recovered/Resolved]
  - Pneumonia [Recovering/Resolving]
  - Respiratory tract congestion [Recovering/Resolving]
  - Cough [Recovering/Resolving]
  - Cardiac failure congestive [Unknown]
  - Duodenal ulcer haemorrhage [Unknown]
  - Dyspnoea [Unknown]
  - Respiratory tract infection [Not Recovered/Not Resolved]
  - Fatigue [Unknown]
  - Weight decreased [Unknown]
  - Joint swelling [Unknown]
  - Pyrexia [Unknown]
  - Vomiting [Unknown]
  - Wheezing [Unknown]
  - Productive cough [Unknown]
  - Secretion discharge [Unknown]
  - Rash [Recovering/Resolving]
  - Therapeutic response decreased [Unknown]

NARRATIVE: CASE EVENT DATE: 20250101
